FAERS Safety Report 18745681 (Version 1)
Quarter: 2021Q1

REPORT INFORMATION
  Report Type: Spontaneous
  Country: US (occurrence: US)
  Receive Date: 20210114
  Receipt Date: 20210114
  Transmission Date: 20210419
  Serious: Yes (Hospitalization, Other)
  Sender: FDA-Public Use
  Company Number: None

PATIENT
  Age: 59 Year
  Sex: Male

DRUGS (1)
  1. HUMIRA [Suspect]
     Active Substance: ADALIMUMAB
     Dosage: ?          OTHER FREQUENCY:EVERY 2 WEEKS;?
     Route: 058
     Dates: start: 20200909, end: 20210106

REACTIONS (5)
  - Oedema peripheral [None]
  - Heart rate abnormal [None]
  - Pericardial effusion [None]
  - Muscular weakness [None]
  - Myocardial infarction [None]

NARRATIVE: CASE EVENT DATE: 20200917
